FAERS Safety Report 10058485 (Version 3)
Quarter: 2014Q4

REPORT INFORMATION
  Report Type: Report from Study
  Country: JP (occurrence: JP)
  Receive Date: 20140404
  Receipt Date: 20141001
  Transmission Date: 20150528
  Serious: Yes (Death, Life-Threatening)
  Sender: FDA-Public Use
  Company Number: JP-009507513-1403JPN013943

PATIENT
  Age: 66 Year
  Sex: Male
  Weight: 50 kg

DRUGS (14)
  1. ROCEPHIN [Concomitant]
     Active Substance: CEFTRIAXONE SODIUM
     Indication: PROPHYLAXIS
     Dosage: DAILY DOSE UNKNOWN
     Route: 042
     Dates: start: 20110729, end: 20110731
  2. ASPARA K [Concomitant]
     Active Substance: POTASSIUM ASPARTATE
     Indication: PROPHYLAXIS
     Dosage: DAILY DOSAGE UNKNOWN
     Route: 048
     Dates: start: 20110627, end: 20110911
  3. NASEA [Concomitant]
     Active Substance: RAMOSETRON HYDROCHLORIDE
     Indication: PROPHYLAXIS
     Dosage: DAILY DOSAGE UNKNOWN
     Route: 042
     Dates: start: 20110801, end: 20110901
  4. TEMOZOLOMIDE. [Suspect]
     Active Substance: TEMOZOLOMIDE
     Indication: GLIOBLASTOMA MULTIFORME
     Dosage: 150 MG/M2,QD
     Route: 041
     Dates: start: 20110801, end: 20110805
  5. CERCINE [Concomitant]
     Active Substance: DIAZEPAM
     Indication: PROPHYLAXIS
     Dosage: DAILY DOSAGE UNKNOWN
     Route: 042
     Dates: start: 20110628, end: 20110824
  6. TEMOZOLOMIDE. [Suspect]
     Active Substance: TEMOZOLOMIDE
     Dosage: 200 MG/M2,QD
     Route: 041
     Dates: start: 20110829, end: 20110901
  7. LAMICTAL [Concomitant]
     Active Substance: LAMOTRIGINE
     Indication: PROPHYLAXIS
     Dosage: DAILY DOSAGE UNKNOWN; ROUTE OF ADMINISTRATION: VIA A TUBE
     Route: 050
     Dates: start: 20110819, end: 20110911
  8. TEMODAL [Suspect]
     Active Substance: TEMOZOLOMIDE
     Indication: GLIOBLASTOMA MULTIFORME
     Dosage: DAILY DOSE UNKNOWN
     Route: 048
     Dates: start: 20101020, end: 20110708
  9. DEPAKENE [Concomitant]
     Active Substance: VALPROIC ACID
     Indication: PROPHYLAXIS
     Dosage: DAILY DOSAGE UNKNOWN
     Route: 048
     Dates: start: 20110617, end: 20110911
  10. GASPORT D [Concomitant]
     Indication: PROPHYLAXIS
     Dosage: DAILY DOSAGE UNKNOWN
     Route: 048
     Dates: start: 20110627, end: 20110911
  11. PRIMPERAN [Concomitant]
     Active Substance: METOCLOPRAMIDE HYDROCHLORIDE
     Indication: PROPHYLAXIS
     Dosage: DAILY DOSAGE UNKNOWN
     Route: 042
     Dates: start: 20110806, end: 20110910
  12. DECADRON [Concomitant]
     Active Substance: DEXAMETHASONE
     Indication: PROPHYLAXIS
     Dosage: DAILY DOSAGE UNKNOWN
     Route: 042
     Dates: start: 20110728, end: 20110908
  13. BAKTAR [Concomitant]
     Active Substance: SULFAMETHOXAZOLE\TRIMETHOPRIM
     Indication: ANTIFUNGAL PROPHYLAXIS
     Dosage: DAILY DOSAGE UNKNOWN
     Route: 048
     Dates: start: 20110630, end: 20110911
  14. BASEN OD [Concomitant]
     Active Substance: VOGLIBOSE
     Dosage: DAILY DOSAGE UNKNOWN
     Route: 048
     Dates: start: 20110622, end: 20110728

REACTIONS (8)
  - Neurological decompensation [Not Recovered/Not Resolved]
  - Pancytopenia [Not Recovered/Not Resolved]
  - General physical health deterioration [Not Recovered/Not Resolved]
  - Hyponatraemia [Recovered/Resolved]
  - Disease progression [Fatal]
  - Hypernatraemia [Not Recovered/Not Resolved]
  - Injection site haemorrhage [Not Recovered/Not Resolved]
  - Lymphocyte count decreased [Recovered/Resolved]

NARRATIVE: CASE EVENT DATE: 20110809
